FAERS Safety Report 20418047 (Version 1)
Quarter: 2022Q1

REPORT INFORMATION
  Report Type: Spontaneous
  Country: US (occurrence: US)
  Receive Date: 20220202
  Receipt Date: 20220202
  Transmission Date: 20220423
  Serious: No
  Sender: FDA-Public Use
  Company Number: US-SUNOVION-2022SUN000228

PATIENT
  Age: 18 Year
  Sex: Female

DRUGS (1)
  1. LATUDA [Suspect]
     Active Substance: LURASIDONE HYDROCHLORIDE
     Indication: Bipolar disorder
     Dosage: 40 MG, QD (1 PILL A DAY 30 30)
     Route: 048
     Dates: start: 202108

REACTIONS (3)
  - Menstruation delayed [Unknown]
  - Diarrhoea [Unknown]
  - Fatigue [Unknown]
